FAERS Safety Report 26211420 (Version 1)
Quarter: 2025Q4

REPORT INFORMATION
  Report Type: Spontaneous
  Country: US (occurrence: US)
  Receive Date: 20251230
  Receipt Date: 20251230
  Transmission Date: 20260117
  Serious: Yes (Disabling)
  Sender: OXFORD PHARMACEUTICALS, LLC
  Company Number: US-Oxford Pharmaceuticals, LLC-2191561

PATIENT
  Sex: Male
  Weight: 67 kg

DRUGS (16)
  1. METHOCARBAMOL [Suspect]
     Active Substance: METHOCARBAMOL
     Indication: Product used for unknown indication
  2. KEVZARA [Suspect]
     Active Substance: SARILUMAB
  3. PREDNISONE [Concomitant]
     Active Substance: PREDNISONE
  4. GABAPENTIN [Concomitant]
     Active Substance: GABAPENTIN
  5. PREGABALIN [Concomitant]
     Active Substance: PREGABALIN
  6. ACETAMINOPHEN\HYDROCODONE BITARTRATE [Concomitant]
     Active Substance: ACETAMINOPHEN\HYDROCODONE BITARTRATE
  7. DULOXETINE HYDROCHLORIDE [Concomitant]
     Active Substance: DULOXETINE HYDROCHLORIDE
  8. VITAMIN D2 [Concomitant]
     Active Substance: ERGOCALCIFEROL
  9. VOLTAREN ARTHRITIS PAIN [Concomitant]
     Active Substance: DICLOFENAC SODIUM
  10. ATORVASTATIN CALCIUM [Concomitant]
     Active Substance: ATORVASTATIN CALCIUM
  11. PROPRANOLOL HYDROCHLORIDE [Concomitant]
     Active Substance: PROPRANOLOL HYDROCHLORIDE
  12. TAMSULOSIN HYDROCHLORIDE [Concomitant]
     Active Substance: TAMSULOSIN HYDROCHLORIDE
  13. COLCHICINE [Concomitant]
     Active Substance: COLCHICINE
  14. MAGNESIUM [Concomitant]
     Active Substance: MAGNESIUM
  15. HERBALS\TURMERIC [Concomitant]
     Active Substance: HERBALS\TURMERIC
  16. DUPILUMAB [Suspect]
     Active Substance: DUPILUMAB

REACTIONS (6)
  - Sciatica [Unknown]
  - Product use in unapproved indication [Unknown]
  - Arthralgia [Unknown]
  - Musculoskeletal stiffness [Unknown]
  - Pain in extremity [Unknown]
  - Headache [Unknown]
